FAERS Safety Report 24080770 (Version 3)
Quarter: 2025Q3

REPORT INFORMATION
  Report Type: Report from Study
  Country: US (occurrence: US)
  Receive Date: 20240711
  Receipt Date: 20250803
  Transmission Date: 20251020
  Serious: Yes (Hospitalization)
  Sender: ALEXION PHARMACEUTICALS
  Company Number: 2024A154986

PATIENT
  Age: 70 Year
  Sex: Male
  Weight: 75.28 kg

DRUGS (18)
  1. OLAPARIB [Suspect]
     Active Substance: OLAPARIB
     Indication: Adenocarcinoma
     Dosage: 10 MILLIGRAM/KILOGRAM, Q2W
     Dates: start: 20231206, end: 20240523
  2. CABAZITAXEL [Suspect]
     Active Substance: CABAZITAXEL
     Indication: Adenocarcinoma
     Dosage: 15 MILLIGRAM/SQ. METER, Q3W
     Dates: start: 20231206, end: 20231206
  3. CABAZITAXEL [Suspect]
     Active Substance: CABAZITAXEL
     Dosage: 15 MILLIGRAM/SQ. METER, Q3W
     Dates: start: 20231228, end: 20231228
  4. CABAZITAXEL [Suspect]
     Active Substance: CABAZITAXEL
     Dosage: 15 MILLIGRAM/SQ. METER, Q3W
     Dates: start: 20240118, end: 20240118
  5. CABAZITAXEL [Suspect]
     Active Substance: CABAZITAXEL
     Dosage: 15 MILLIGRAM/SQ. METER, Q3W
     Dates: start: 20240208, end: 20240208
  6. CABAZITAXEL [Suspect]
     Active Substance: CABAZITAXEL
     Dosage: 15 MILLIGRAM/SQ. METER, Q3W
     Dates: start: 20240314, end: 20240314
  7. CABAZITAXEL [Suspect]
     Active Substance: CABAZITAXEL
     Dates: start: 20231206, end: 20231206
  8. CARBOPLATIN [Suspect]
     Active Substance: CARBOPLATIN
     Indication: Adenocarcinoma
     Dates: start: 20231206, end: 20231206
  9. CARBOPLATIN [Suspect]
     Active Substance: CARBOPLATIN
     Dates: start: 20231228, end: 20231228
  10. CARBOPLATIN [Suspect]
     Active Substance: CARBOPLATIN
     Dates: start: 20240118, end: 20240118
  11. CARBOPLATIN [Suspect]
     Active Substance: CARBOPLATIN
     Dates: start: 20240208, end: 20240208
  12. CARBOPLATIN [Suspect]
     Active Substance: CARBOPLATIN
     Dates: start: 20240314, end: 20240314
  13. CALTRATE [Concomitant]
     Active Substance: CALCIUM CARBONATE
  14. ACETAMINOPHEN [Concomitant]
     Active Substance: ACETAMINOPHEN
  15. DICLOFENAC SODIUM [Concomitant]
     Active Substance: DICLOFENAC SODIUM
  16. XGEVA [Concomitant]
     Active Substance: DENOSUMAB
  17. ELIGARD [Concomitant]
     Active Substance: LEUPROLIDE ACETATE
  18. OXYCODONE [Concomitant]
     Active Substance: OXYCODONE

REACTIONS (1)
  - Pneumonia aspiration [Recovered/Resolved]

NARRATIVE: CASE EVENT DATE: 20240614
